FAERS Safety Report 21004137 (Version 1)
Quarter: 2022Q2

REPORT INFORMATION
  Report Type: Spontaneous
  Country: US (occurrence: US)
  Receive Date: 20220624
  Receipt Date: 20220624
  Transmission Date: 20220721
  Serious: No
  Sender: FDA-Public Use
  Company Number: US-AVEO ONCOLOGY-2022-AVEO-US000182

PATIENT

DRUGS (15)
  1. FOTIVDA [Suspect]
     Active Substance: TIVOZANIB HYDROCHLORIDE
     Indication: Renal cell carcinoma
     Dosage: 1.34 MG, DAILY FOR 21 DAYS ON 7 DAYS OFF
     Route: 048
     Dates: start: 20220517
  2. ARGININE [Concomitant]
     Active Substance: ARGININE
  3. ASPERCREME NOS [Concomitant]
     Active Substance: MENTHOL\TROLAMINE SALICYLATE
  4. BENADRYL [Concomitant]
     Active Substance: DIPHENHYDRAMINE HYDROCHLORIDE
  5. ESZOPICLONE [Concomitant]
     Active Substance: ESZOPICLONE
  6. GABAPENTIN [Concomitant]
     Active Substance: GABAPENTIN
  7. LAMOTRIGINE [Concomitant]
     Active Substance: LAMOTRIGINE
  8. LOSARTAN [Concomitant]
     Active Substance: LOSARTAN
  9. OXYCODONE [Concomitant]
     Active Substance: OXYCODONE
  10. PRAVASTATIN [Concomitant]
     Active Substance: PRAVASTATIN
  11. NAPROXEN [Concomitant]
     Active Substance: NAPROXEN
  12. VITAMINS [Concomitant]
     Active Substance: VITAMINS
  13. TYLENOL [Concomitant]
     Active Substance: ACETAMINOPHEN
  14. VITAMIN D [Concomitant]
     Active Substance: VITAMIN D NOS
  15. ZYRTEC [Concomitant]
     Active Substance: CETIRIZINE HYDROCHLORIDE

REACTIONS (2)
  - Dysphonia [Unknown]
  - Chills [Unknown]
